FAERS Safety Report 19818811 (Version 3)
Quarter: 2021Q4

REPORT INFORMATION
  Report Type: Spontaneous
  Country: NC (occurrence: NC)
  Receive Date: 20210912
  Receipt Date: 20211008
  Transmission Date: 20220303
  Serious: Yes (Other)
  Sender: FDA-Public Use
  Company Number: FR-FRESENIUS KABI-FK202109028

PATIENT
  Age: 48 Year
  Sex: Female

DRUGS (14)
  1. PERTUZUMAB [Suspect]
     Active Substance: PERTUZUMAB
     Indication: Breast cancer
     Route: 065
     Dates: start: 20210727
  2. PERTUZUMAB [Suspect]
     Active Substance: PERTUZUMAB
     Route: 065
     Dates: start: 20210525
  3. PERTUZUMAB [Suspect]
     Active Substance: PERTUZUMAB
     Dosage: CURE 3 DAY 1, 420MG
     Route: 065
     Dates: start: 20210706
  4. TRASTUZUMAB [Suspect]
     Active Substance: TRASTUZUMAB
     Indication: Breast cancer
     Dosage: 378MG, CURE 3 DAY 1
     Route: 065
     Dates: start: 20210706
  5. TRASTUZUMAB [Suspect]
     Active Substance: TRASTUZUMAB
     Route: 065
     Dates: start: 20210727
  6. TRASTUZUMAB [Suspect]
     Active Substance: TRASTUZUMAB
     Route: 065
     Dates: start: 20210525
  7. EPIRUBICIN [Suspect]
     Active Substance: EPIRUBICIN
     Indication: Breast cancer
     Route: 065
     Dates: start: 20210202
  8. CYTARABINE [Suspect]
     Active Substance: CYTARABINE
     Indication: Breast cancer
     Route: 065
     Dates: start: 20210202
  9. PACLITAXEL [Suspect]
     Active Substance: PACLITAXEL
     Indication: Breast cancer
     Dosage: 100MG/16.7ML?CURE 2 DAY 15, 138MG
     Route: 065
     Dates: start: 20210622
  10. PACLITAXEL [Suspect]
     Active Substance: PACLITAXEL
     Dosage: 100MG/16.7ML
     Route: 065
     Dates: start: 20210202
  11. PACLITAXEL [Suspect]
     Active Substance: PACLITAXEL
     Dosage: 100MG/16.7ML?CURE 1 DAY 1
     Route: 065
     Dates: start: 20210525
  12. PACLITAXEL [Suspect]
     Active Substance: PACLITAXEL
     Dosage: 100MG/16.7ML?CURE 3 DAY 1, 138MG
     Route: 065
     Dates: start: 20210706
  13. PACLITAXEL [Suspect]
     Active Substance: PACLITAXEL
     Dosage: 100MG/16.7ML?CURE 3 DAY 8, 138MG
     Route: 065
     Dates: start: 20210713
  14. PACLITAXEL [Suspect]
     Active Substance: PACLITAXEL
     Dosage: 100MG/16.7ML?CURE 3 DAY 15, 98,4MG
     Route: 065
     Dates: start: 20210720, end: 20210727

REACTIONS (9)
  - Neuropathy peripheral [Not Recovered/Not Resolved]
  - Skin abrasion [Unknown]
  - Paraesthesia [Unknown]
  - Epistaxis [Recovered/Resolved]
  - Oesophagitis [Unknown]
  - Diarrhoea [Unknown]
  - Conjunctivitis [Unknown]
  - Oedema [Unknown]
  - Constipation [Unknown]

NARRATIVE: CASE EVENT DATE: 20210622
